FAERS Safety Report 10580107 (Version 1)
Quarter: 2014Q4

REPORT INFORMATION
  Report Type: Spontaneous
  Country: US (occurrence: US)
  Receive Date: 20141112
  Receipt Date: 20141112
  Transmission Date: 20150529
  Serious: No
  Sender: FDA-Public Use
  Company Number: US-UPSHER-SMITH LABORATORIES, INC.-14000386

PATIENT
  Sex: Female

DRUGS (1)
  1. JANTOVEN [Suspect]
     Active Substance: WARFARIN SODIUM
     Indication: CEREBROVASCULAR ACCIDENT
     Dosage: UNK, UNK
     Route: 048
     Dates: start: 201401

REACTIONS (2)
  - Petechiae [Not Recovered/Not Resolved]
  - Skin discolouration [Not Recovered/Not Resolved]

NARRATIVE: CASE EVENT DATE: 201301
